FAERS Safety Report 12905801 (Version 1)
Quarter: 2016Q4

REPORT INFORMATION
  Report Type: Report from Study
  Country: ES (occurrence: ES)
  Receive Date: 20161103
  Receipt Date: 20161103
  Transmission Date: 20170207
  Serious: Yes (Other)
  Sender: FDA-Public Use
  Company Number: ES-ROCHE-1845853

PATIENT

DRUGS (32)
  1. TOCILIZUMAB [Suspect]
     Active Substance: TOCILIZUMAB
     Indication: PSORIATIC ARTHROPATHY
  2. TOCILIZUMAB [Suspect]
     Active Substance: TOCILIZUMAB
     Indication: ANKYLOSING SPONDYLITIS
  3. ETANERCEPT [Suspect]
     Active Substance: ETANERCEPT
     Indication: PSORIATIC ARTHROPATHY
  4. RITUXIMAB [Suspect]
     Active Substance: RITUXIMAB
     Indication: PSORIATIC ARTHROPATHY
  5. GOLIMUMAB [Suspect]
     Active Substance: GOLIMUMAB
     Indication: RHEUMATOID ARTHRITIS
     Route: 065
  6. ABATACEPT [Suspect]
     Active Substance: ABATACEPT
     Indication: ANKYLOSING SPONDYLITIS
  7. ETANERCEPT [Suspect]
     Active Substance: ETANERCEPT
     Indication: SPONDYLOARTHROPATHY
  8. GOLIMUMAB [Suspect]
     Active Substance: GOLIMUMAB
     Indication: PSORIATIC ARTHROPATHY
  9. CERTOLIZUMAB [Suspect]
     Active Substance: CERTOLIZUMAB
     Indication: ANKYLOSING SPONDYLITIS
  10. ABATACEPT [Suspect]
     Active Substance: ABATACEPT
     Indication: PSORIATIC ARTHROPATHY
  11. RITUXIMAB [Suspect]
     Active Substance: RITUXIMAB
     Indication: RHEUMATOID ARTHRITIS
     Route: 065
  12. ETANERCEPT [Suspect]
     Active Substance: ETANERCEPT
     Indication: RHEUMATOID ARTHRITIS
     Route: 065
  13. INFLIXIMAB [Suspect]
     Active Substance: INFLIXIMAB
     Indication: PSORIATIC ARTHROPATHY
  14. GOLIMUMAB [Suspect]
     Active Substance: GOLIMUMAB
     Indication: SPONDYLOARTHROPATHY
  15. TOCILIZUMAB [Suspect]
     Active Substance: TOCILIZUMAB
     Indication: SPONDYLOARTHROPATHY
  16. CERTOLIZUMAB [Suspect]
     Active Substance: CERTOLIZUMAB
     Indication: SPONDYLOARTHROPATHY
  17. RITUXIMAB [Suspect]
     Active Substance: RITUXIMAB
     Indication: ANKYLOSING SPONDYLITIS
  18. RITUXIMAB [Suspect]
     Active Substance: RITUXIMAB
     Indication: SPONDYLOARTHROPATHY
  19. ADALIMUMAB [Suspect]
     Active Substance: ADALIMUMAB
     Indication: PSORIATIC ARTHROPATHY
  20. INFLIXIMAB [Suspect]
     Active Substance: INFLIXIMAB
     Indication: RHEUMATOID ARTHRITIS
     Route: 065
  21. INFLIXIMAB [Suspect]
     Active Substance: INFLIXIMAB
     Indication: ANKYLOSING SPONDYLITIS
  22. TOCILIZUMAB [Suspect]
     Active Substance: TOCILIZUMAB
     Indication: RHEUMATOID ARTHRITIS
     Route: 065
  23. ADALIMUMAB [Suspect]
     Active Substance: ADALIMUMAB
     Indication: RHEUMATOID ARTHRITIS
     Route: 065
  24. ADALIMUMAB [Suspect]
     Active Substance: ADALIMUMAB
     Indication: ANKYLOSING SPONDYLITIS
  25. INFLIXIMAB [Suspect]
     Active Substance: INFLIXIMAB
     Indication: SPONDYLOARTHROPATHY
  26. GOLIMUMAB [Suspect]
     Active Substance: GOLIMUMAB
     Indication: ANKYLOSING SPONDYLITIS
  27. CERTOLIZUMAB [Suspect]
     Active Substance: CERTOLIZUMAB
     Indication: RHEUMATOID ARTHRITIS
     Route: 065
  28. CERTOLIZUMAB [Suspect]
     Active Substance: CERTOLIZUMAB
     Indication: PSORIATIC ARTHROPATHY
  29. ADALIMUMAB [Suspect]
     Active Substance: ADALIMUMAB
     Indication: SPONDYLOARTHROPATHY
  30. ETANERCEPT [Suspect]
     Active Substance: ETANERCEPT
     Indication: ANKYLOSING SPONDYLITIS
  31. ABATACEPT [Suspect]
     Active Substance: ABATACEPT
     Indication: RHEUMATOID ARTHRITIS
     Route: 065
  32. ABATACEPT [Suspect]
     Active Substance: ABATACEPT
     Indication: SPONDYLOARTHROPATHY

REACTIONS (13)
  - Tuberculosis [Unknown]
  - Hepatotoxicity [Unknown]
  - Ill-defined disorder [Unknown]
  - Lipids abnormal [Unknown]
  - Haematotoxicity [Unknown]
  - Infusion related reaction [Unknown]
  - Mental disorder [Unknown]
  - Bacterial infection [Unknown]
  - Skin toxicity [Unknown]
  - Dermatitis psoriasiform [Unknown]
  - Neoplasm [Unknown]
  - Viral infection [Unknown]
  - Anaphylactic reaction [Unknown]
